FAERS Safety Report 5417090-X (Version None)
Quarter: 2007Q3

REPORT INFORMATION
  Report Type: 
  Country: None (occurrence: None)
  Receive Date: 20070816
  Receipt Date: 20070816
  Transmission Date: 20080115
  Serious: Yes (Other)
  Sender: FDA-Public Use
  Company Number: US-GENENTECH-234905

PATIENT
  Sex: Female
  Weight: 76.643 kg

DRUGS (3)
  1. LUCENTIS [Suspect]
     Indication: MACULAR DEGENERATION
     Route: 031
     Dates: start: 20061224
  2. COUMADIN [Concomitant]
     Indication: DRUG USE FOR UNKNOWN INDICATION
     Dosage: 5 MG, 2/WEEK
  3. COUMADIN [Concomitant]
     Dosage: 2.5 MG, 3/WEEK

REACTIONS (1)
  - WHITE BLOOD CELL COUNT INCREASED [None]
